FAERS Safety Report 17892907 (Version 1)
Quarter: 2020Q2

REPORT INFORMATION
  Report Type: Spontaneous
  Country: US (occurrence: US)
  Receive Date: 20200613
  Receipt Date: 20200613
  Transmission Date: 20200714
  Serious: No
  Sender: FDA-Public Use
  Company Number: NVSC2020US164658

PATIENT
  Sex: Male

DRUGS (2)
  1. LENVIMA [Suspect]
     Active Substance: LENVATINIB
     Indication: RENAL CANCER
     Dosage: 18 MG, QD
     Route: 048
     Dates: start: 20200318
  2. AFINITOR [Suspect]
     Active Substance: EVEROLIMUS
     Indication: RENAL CANCER
     Dosage: 5 MG, QD
     Route: 048

REACTIONS (11)
  - Vomiting [Unknown]
  - Blood cholesterol increased [Unknown]
  - Nausea [Unknown]
  - Glossitis [Unknown]
  - Decreased appetite [Unknown]
  - Acne [Unknown]
  - Fatigue [Unknown]
  - Diarrhoea [Unknown]
  - Musculoskeletal pain [Recovered/Resolved]
  - Rash pruritic [Unknown]
  - Weight decreased [Unknown]
